FAERS Safety Report 19209976 (Version 1)
Quarter: 2021Q2

REPORT INFORMATION
  Report Type: Spontaneous
  Country: US (occurrence: US)
  Receive Date: 20210504
  Receipt Date: 20210504
  Transmission Date: 20210717
  Serious: Yes (Other)
  Sender: FDA-Public Use
  Company Number: US-CIPLA (EU) LIMITED-2021US03161

PATIENT

DRUGS (1)
  1. VALGANCICLOVIR. [Suspect]
     Active Substance: VALGANCICLOVIR
     Indication: CONGENITAL CYTOMEGALOVIRUS INFECTION
     Dosage: UNK
     Route: 048

REACTIONS (2)
  - Platelet count abnormal [Unknown]
  - Thrombocytosis [Unknown]
